FAERS Safety Report 9637129 (Version 2)
Quarter: 2016Q4

REPORT INFORMATION
  Report Type: Spontaneous
  Country: US (occurrence: US)
  Receive Date: 20131022
  Receipt Date: 20161028
  Transmission Date: 20170207
  Serious: Yes (Hospitalization)
  Sender: FDA-Public Use
  Company Number: US-RANBAXY-2013US-74301

PATIENT
  Age: 21 Year
  Sex: Female

DRUGS (2)
  1. DOXYCYCLINE. [Suspect]
     Active Substance: DOXYCYCLINE
     Indication: UPPER RESPIRATORY TRACT INFECTION
     Dosage: UNK
     Route: 065
  2. CELEXA [Concomitant]
     Active Substance: CITALOPRAM HYDROBROMIDE
     Indication: ANXIETY
     Dosage: 60 MG, DAILY
     Route: 065

REACTIONS (1)
  - Pancreatitis [Recovered/Resolved]
